FAERS Safety Report 13439129 (Version 5)
Quarter: 2017Q4

REPORT INFORMATION
  Report Type: Spontaneous
  Country: US (occurrence: US)
  Receive Date: 20170412
  Receipt Date: 20171107
  Transmission Date: 20180320
  Serious: Yes (Hospitalization, Other)
  Sender: FDA-Public Use
  Company Number: US-ACTELION-A-US2017-152314

PATIENT
  Age: 8 Month
  Sex: Male

DRUGS (11)
  1. FUROSEMIDE. [Concomitant]
     Active Substance: FUROSEMIDE
  2. MUPIROCIN. [Concomitant]
     Active Substance: MUPIROCIN
  3. TRACLEER [Suspect]
     Active Substance: BOSENTAN
     Dosage: 15.625 MG (31.25 MG TABLET DISSOLVED IN 5 ML WATER; GIVE 2.5 ML), BID
     Route: 049
     Dates: start: 20170406
  4. FLUCONAZOLE. [Concomitant]
     Active Substance: FLUCONAZOLE
  5. RANITIDINE. [Concomitant]
     Active Substance: RANITIDINE
  6. ERYTHROMYCIN ETHYL SUCCINATE [Concomitant]
     Active Substance: ERYTHROMYCIN ETHYLSUCCINATE
  7. SPIRONOLACTONE. [Concomitant]
     Active Substance: SPIRONOLACTONE
  8. TRACLEER [Suspect]
     Active Substance: BOSENTAN
     Indication: PULMONARY HYPERTENSION
     Dosage: 31.25 MG, (62.5 MG TABLET: DISSOLVE 1/2 TABLET IN 5 ML WATER)
     Route: 049
     Dates: start: 20170406, end: 20171021
  9. SILDENAFIL. [Concomitant]
     Active Substance: SILDENAFIL
  10. HYDROCODONE BITARTRATE AND ACETAMINOPHEN [Concomitant]
     Active Substance: ACETAMINOPHEN\HYDROCODONE BITARTRATE
  11. ONDANSETRON [Concomitant]
     Active Substance: ONDANSETRON

REACTIONS (8)
  - Atrial septal defect [Unknown]
  - Pulmonary vein stenosis [Unknown]
  - Product use issue [Unknown]
  - Respiratory disorder [Recovered/Resolved]
  - Catheterisation cardiac [Unknown]
  - Pulmonary hypertension [Unknown]
  - No adverse event [Unknown]
  - Ventricular septal defect repair [Unknown]

NARRATIVE: CASE EVENT DATE: 20170509
